FAERS Safety Report 7305760-8 (Version None)
Quarter: 2011Q1

REPORT INFORMATION
  Report Type: 
  Country: None (occurrence: None)
  Receive Date: 20110222
  Receipt Date: 20110216
  Transmission Date: 20110831
  Serious: Yes (Other)
  Sender: FDA-Public Use
  Company Number: B0700174A

PATIENT
  Age: 74 Year
  Sex: Female

DRUGS (15)
  1. MEBEVERINE HYDROCHLORIDE [Concomitant]
  2. TRAMADOL HCL [Concomitant]
  3. OMEPRAZOLE [Concomitant]
  4. PRAVASTATIN SODIUM [Concomitant]
  5. SPIRIVA [Concomitant]
  6. NITROGLYCERIN [Concomitant]
  7. WARFARIN SODIUM [Concomitant]
  8. FUROSEMIDE [Concomitant]
  9. TERBUTALINE SULFATE [Concomitant]
  10. CLOMIPRAMINE HYDROCHLORIDE [Concomitant]
  11. NICORANDIL [Concomitant]
  12. ACICLOVIR [Suspect]
     Indication: HERPES ZOSTER
     Dosage: 4000MG PER DAY
     Route: 048
     Dates: start: 20101118, end: 20101125
  13. ISOSORBIDE MONONITRATE [Concomitant]
  14. LEVOTHYROXINE SODIUM [Concomitant]
  15. ATENOLOL [Concomitant]

REACTIONS (2)
  - INTERNATIONAL NORMALISED RATIO INCREASED [None]
  - COAGULATION TIME PROLONGED [None]
